FAERS Safety Report 8852707 (Version 2)
Quarter: 2013Q2

REPORT INFORMATION
  Report Type: Spontaneous
  Country: NL (occurrence: GB)
  Receive Date: 20121022
  Receipt Date: 20130520
  Transmission Date: 20140414
  Serious: Yes (Death, Other)
  Sender: FDA-Public Use
  Company Number: PHFR2012GB005478

PATIENT
  Sex: 0

DRUGS (27)
  1. CLOZAPINE [Suspect]
     Indication: SCHIZOPHRENIA
     Dosage: 800 MG, DAILY
     Route: 048
     Dates: start: 20081209
  2. CLOZAPINE [Suspect]
     Dosage: 600 MG, UNK
  3. CLOZAPINE [Suspect]
     Dosage: 400 MG,BID
     Route: 048
     Dates: start: 20081209
  4. CLOZAPINE [Suspect]
     Dosage: 150 MG,BID
  5. SIMVASTATIN [Concomitant]
     Dosage: 40 MG, NOCTE
  6. SERTRALINE [Concomitant]
     Indication: DEPRESSION
     Dosage: 100 MG, DAILY
  7. TAZOCIN [Concomitant]
     Dosage: UNK UKN, UNK
  8. TAZOCIN [Concomitant]
     Dosage: UNK
  9. DEPO-PROVERA [Concomitant]
     Dosage: UNK UKN, UNK
  10. DEPO-PROVERA [Concomitant]
     Dosage: UNK
  11. LEVOTHYROXINE [Concomitant]
     Dosage: 25 UG, IN THE MORNING
  12. LANTUS [Concomitant]
     Dosage: UNK UKN, UNK
  13. LANTUS [Concomitant]
     Dosage: UNK UKN, UNK
  14. PARACETAMOL [Concomitant]
     Dosage: UNK UKN, UNK
  15. PARACETAMOL [Concomitant]
     Dosage: UNK UKN, UNK
  16. APIDRA [Concomitant]
     Dosage: UNK UKN, UNK
  17. APIDRA [Concomitant]
     Dosage: UNK UKN, UNK
  18. OMEPRAZOLE [Concomitant]
     Dosage: 200 MG, DAILY
  19. METFORMIN [Concomitant]
     Dosage: 500 MG, TID
  20. DIAZEPAM [Concomitant]
     Dosage: 5 MG, DAILY
  21. DIAZEPAM [Concomitant]
     Dosage: 5 MG, BID
  22. DIHYDROCODEINE [Concomitant]
     Dosage: 30 MG, EVERY 4-6 HOURS
  23. LYMECYCLINE [Concomitant]
     Dosage: 408 MG, DAILY
  24. CHLORPHENAMINE [Concomitant]
     Dosage: 4 MG, EVERY 4-6 HOURS
  25. FUROSEMIDE [Concomitant]
     Dosage: 20 MG, IN THE MORNING
     Dates: start: 20120730
  26. ZAPONEX [Concomitant]
     Indication: SCHIZOPHRENIA
     Dosage: 800 MG, QD
     Dates: start: 20081209
  27. ZAPONEX [Concomitant]
     Dosage: 150 MG, BID

REACTIONS (23)
  - Adenocarcinoma [Fatal]
  - Metastasis [Fatal]
  - Obstructive airways disorder [Fatal]
  - Tumour compression [Fatal]
  - Superior vena cava syndrome [Not Recovered/Not Resolved]
  - Lymphoma [Unknown]
  - Endocarditis [Unknown]
  - Respiratory distress [Not Recovered/Not Resolved]
  - Infection [Unknown]
  - Mass [Not Recovered/Not Resolved]
  - Joint swelling [Not Recovered/Not Resolved]
  - Dyspnoea [Not Recovered/Not Resolved]
  - Electrocardiogram QT prolonged [Unknown]
  - Furuncle [Unknown]
  - Malaise [Not Recovered/Not Resolved]
  - Arthralgia [Not Recovered/Not Resolved]
  - Emotional distress [Not Recovered/Not Resolved]
  - Inflammatory marker increased [Not Recovered/Not Resolved]
  - General physical health deterioration [Not Recovered/Not Resolved]
  - Oedema peripheral [Not Recovered/Not Resolved]
  - Platelet count increased [Unknown]
  - White blood cell count increased [Unknown]
  - Neutrophil count increased [Unknown]
